FAERS Safety Report 4948717-4 (Version None)
Quarter: 2006Q1

REPORT INFORMATION
  Report Type: 
  Country: None (occurrence: None)
  Receive Date: 20060314
  Receipt Date: 20060222
  Transmission Date: 20060701
  Serious: Yes (Hospitalization)
  Sender: FDA-Public Use
  Company Number: GBWYE425223FEB06

PATIENT
  Age: 67 Year
  Sex: Female

DRUGS (1)
  1. MONOCOR (BISOPROLOL, UNSPEC) [Suspect]
     Indication: CARDIOVASCULAR DISORDER
     Dosage: 5 MG

REACTIONS (9)
  - ANGIOPATHY [None]
  - BRADYCARDIA [None]
  - DEPRESSED LEVEL OF CONSCIOUSNESS [None]
  - DIALYSIS [None]
  - DIARRHOEA [None]
  - ELECTROCARDIOGRAM QRS COMPLEX PROLONGED [None]
  - HYPERKALAEMIA [None]
  - RENAL FAILURE ACUTE [None]
  - SHOCK [None]
